FAERS Safety Report 7462632-6 (Version None)
Quarter: 2011Q2

REPORT INFORMATION
  Report Type: 
  Country: None (occurrence: None)
  Receive Date: 20110506
  Receipt Date: 20110425
  Transmission Date: 20111010
  Serious: Yes (Hospitalization)
  Sender: FDA-Public Use
  Company Number: PHHY2011IT35264

PATIENT
  Sex: Male

DRUGS (7)
  1. ZOLOFT [Concomitant]
  2. ASPIRIN [Concomitant]
  3. ESKIM [Concomitant]
  4. FRAGMIN [Concomitant]
     Dosage: 5000 IU, UNK
  5. GLIBOMET [Concomitant]
     Dosage: 1 DF, UNK
  6. LITHIUM CARBONATE [Suspect]
     Indication: DEPRESSION
     Dosage: 600 MG, DAILY
     Route: 048
     Dates: start: 20110205, end: 20110321
  7. TEGRETOL [Suspect]
     Indication: DEPRESSION
     Dosage: 400 MG, DAILY
     Route: 048
     Dates: start: 20110205, end: 20110321

REACTIONS (2)
  - GAIT DISTURBANCE [None]
  - VERTIGO POSITIONAL [None]
